FAERS Safety Report 6475070-X (Version None)
Quarter: 2009Q4

REPORT INFORMATION
  Report Type: 
  Country: None (occurrence: None)
  Receive Date: 20091204
  Receipt Date: 20090507
  Transmission Date: 20100525
  Serious: Yes (Disabling, Other)
  Sender: FDA-Public Use
  Company Number: FR-ELI_LILLY_AND_COMPANY-FR200903001301

PATIENT
  Age: 45 Year
  Sex: Female

DRUGS (5)
  1. CYMBALTA [Suspect]
     Indication: DEPRESSION
     Dosage: 60 MG, DAILY (1/D)
     Route: 048
     Dates: start: 20080620, end: 20090220
  2. CYMBALTA [Suspect]
     Dosage: 30 MG, DAILY (1/D)
     Route: 048
     Dates: start: 20090220, end: 20090320
  3. NOCERTONE [Concomitant]
     Indication: MIGRAINE
     Dosage: 2 D/F, DAILY (1/D)
     Route: 050
     Dates: start: 20060101
  4. ATARAX [Concomitant]
     Dosage: 37.5 MG, DAILY (1/D)
     Route: 051
  5. EPITOMAX [Concomitant]
     Indication: MIGRAINE
     Dosage: 2 D/F, DAILY (1/D)
     Route: 048
     Dates: start: 20060101

REACTIONS (3)
  - ARTHRALGIA [None]
  - CARPAL TUNNEL SYNDROME [None]
  - WEIGHT INCREASED [None]
